FAERS Safety Report 17678081 (Version 1)
Quarter: 2020Q2

REPORT INFORMATION
  Report Type: Spontaneous
  Country: NL (occurrence: NL)
  Receive Date: 20200417
  Receipt Date: 20200417
  Transmission Date: 20200714
  Serious: No
  Sender: FDA-Public Use
  Company Number: NL-LUPIN PHARMACEUTICALS INC.-2019-02016

PATIENT
  Age: 66 Year

DRUGS (2)
  1. RIFAMPICIN [Suspect]
     Active Substance: RIFAMPIN
     Dosage: UNK (DOSE RE-ADJUSTMENT FROM 1200 MG TO 900 MG (21 MG/KG))
     Route: 065
     Dates: end: 201805
  2. RIFAMPICIN [Suspect]
     Active Substance: RIFAMPIN
     Indication: TUBERCULOSIS
     Dosage: 600 MILLIGRAM, QD (HIGHER DOSE)
     Route: 065
     Dates: start: 201801

REACTIONS (1)
  - Decreased appetite [Unknown]
